FAERS Safety Report 6733557-6 (Version None)
Quarter: 2010Q2

REPORT INFORMATION
  Report Type: 
  Country: None (occurrence: None)
  Receive Date: 20100520
  Receipt Date: 20100511
  Transmission Date: 20101027
  Serious: Yes (Hospitalization)
  Sender: FDA-Public Use
  Company Number: CA-ASTRAZENECA-2010SE21812

PATIENT
  Sex: Female

DRUGS (4)
  1. LOSEC I.V. [Suspect]
     Indication: GASTROOESOPHAGEAL REFLUX DISEASE
     Route: 048
     Dates: start: 20020101
  2. BLOOD PRESSURE MEDICATION [Concomitant]
     Route: 065
  3. CHOLESTEROL MEDICATION [Concomitant]
     Route: 065
  4. ALLOPURINOL [Concomitant]
     Indication: GOUT
     Route: 065

REACTIONS (2)
  - CLOSTRIDIAL INFECTION [None]
  - HIP ARTHROPLASTY [None]
